FAERS Safety Report 15793353 (Version 1)
Quarter: 2019Q1

REPORT INFORMATION
  Report Type: Spontaneous
  Country: US (occurrence: US)
  Receive Date: 20190107
  Receipt Date: 20190107
  Transmission Date: 20190417
  Serious: No
  Sender: FDA-Public Use
  Company Number: US-ACLARIS THERAPEUTICS-2018US009963

PATIENT
  Age: 59 Year
  Sex: Female

DRUGS (3)
  1. ESKATA [Suspect]
     Active Substance: HYDROGEN PEROXIDE
     Indication: SEBORRHOEIC KERATOSIS
     Dosage: APPLIED FOUR TIMES
     Route: 061
     Dates: start: 20180515
  2. ESKATA [Suspect]
     Active Substance: HYDROGEN PEROXIDE
     Dosage: APPLIED FOUR TIMES
     Route: 061
     Dates: start: 20180607
  3. NAPROXEN. [Concomitant]
     Active Substance: NAPROXEN
     Indication: PRODUCT USED FOR UNKNOWN INDICATION
     Dosage: UNK

REACTIONS (3)
  - Scar [Not Recovered/Not Resolved]
  - Erythema [Recovered/Resolved]
  - Skin hyperpigmentation [Not Recovered/Not Resolved]

NARRATIVE: CASE EVENT DATE: 20180607
